FAERS Safety Report 10463721 (Version 1)
Quarter: 2014Q3

REPORT INFORMATION
  Report Type: Spontaneous
  Country: US (occurrence: None)
  Receive Date: 20140918
  Receipt Date: 20140918
  Transmission Date: 20150326
  Serious: Yes (Life-Threatening, Hospitalization, Disabling, Other)
  Sender: FDA-Public Use
  Company Number: None

PATIENT
  Age: 64 Year
  Sex: Female
  Weight: 64.86 kg

DRUGS (1)
  1. LORAZEPAM. [Suspect]
     Active Substance: LORAZEPAM
     Indication: ANXIETY
     Dosage: 2 . PLS. 05 ONCE DAILY TAKEN BY MOUTH
     Route: 048
     Dates: start: 20121001, end: 20140910

REACTIONS (23)
  - Dyspnoea [None]
  - Neuropathy peripheral [None]
  - Dizziness postural [None]
  - Feeling abnormal [None]
  - Pain [None]
  - Anger [None]
  - Social avoidant behaviour [None]
  - Influenza like illness [None]
  - Physical assault [None]
  - Memory impairment [None]
  - Gastrointestinal disorder [None]
  - Drug interaction [None]
  - Depression [None]
  - Suicidal ideation [None]
  - Vision blurred [None]
  - Decreased appetite [None]
  - Fall [None]
  - Middle insomnia [None]
  - Mental disorder [None]
  - Withdrawal syndrome [None]
  - Night sweats [None]
  - Insomnia [None]
  - Dependence [None]

NARRATIVE: CASE EVENT DATE: 20121001
